FAERS Safety Report 7166755-0 (Version None)
Quarter: 2010Q4

REPORT INFORMATION
  Report Type: 
  Country: None (occurrence: None)
  Receive Date: 20101213
  Receipt Date: 20101213
  Transmission Date: 20110411
  Serious: No
  Sender: FDA-Public Use
  Company Number: None

PATIENT
  Sex: Female
  Weight: 64.4108 kg

DRUGS (1)
  1. DEPO-PROVERA [Suspect]
     Indication: CONTRACEPTION
     Dosage: SQ
     Route: 058
     Dates: start: 20060416, end: 20101210

REACTIONS (5)
  - ABDOMINAL PAIN [None]
  - ALOPECIA [None]
  - BACK PAIN [None]
  - FUNGAL INFECTION [None]
  - SMEAR CERVIX ABNORMAL [None]
